FAERS Safety Report 18670809 (Version 1)
Quarter: 2020Q4

REPORT INFORMATION
  Report Type: Spontaneous
  Country: US (occurrence: US)
  Receive Date: 20201228
  Receipt Date: 20201228
  Transmission Date: 20210114
  Serious: Yes (Hospitalization)
  Sender: FDA-Public Use
  Company Number: US-COVIS PHARMA B.V.-2020COV00576

PATIENT
  Age: 99 Year
  Sex: Female
  Weight: 49.89 kg

DRUGS (4)
  1. ALVESCO [Suspect]
     Active Substance: CICLESONIDE
     Dosage: 320 ?G (2 PUFFS), 2X/DAY
     Dates: start: 2020
  2. ALVESCO [Suspect]
     Active Substance: CICLESONIDE
     Dosage: 160 ?G (1 PUFF), 2X/DAY
     Dates: start: 2020, end: 2020
  3. ALVESCO [Suspect]
     Active Substance: CICLESONIDE
     Indication: ASTHMA
     Dosage: 320 ?G (2 PUFFS), 2X/DAY
     Dates: end: 2020
  4. LEVALBUTEROL INHALER [Concomitant]

REACTIONS (3)
  - Cough [Not Recovered/Not Resolved]
  - Hospitalisation [Recovered/Resolved]
  - Device malfunction [Not Recovered/Not Resolved]

NARRATIVE: CASE EVENT DATE: 202012
